FAERS Safety Report 5988858-6 (Version None)
Quarter: 2008Q4

REPORT INFORMATION
  Report Type: 
  Country: None (occurrence: None)
  Receive Date: 20081204
  Receipt Date: 20081128
  Transmission Date: 20090506
  Serious: Yes (Hospitalization)
  Sender: FDA-Public Use
  Company Number: 2008SP024225

PATIENT
  Sex: Male

DRUGS (2)
  1. BETAMETHASONE DIPROPIONATE [Suspect]
     Indication: OSTEOARTHRITIS
     Dosage: ONCE; IA
     Route: 014
  2. HEXATRONE (TRIAMCINOLONE HEXACETONIDE) [Suspect]
     Indication: OSTEOARTHRITIS
     Dosage: ONCE; IA
     Route: 014

REACTIONS (2)
  - ARTHRITIS [None]
  - HAEMARTHROSIS [None]
